FAERS Safety Report 23295539 (Version 1)
Quarter: 2023Q4

REPORT INFORMATION
  Report Type: Spontaneous
  Country: US (occurrence: US)
  Receive Date: 20231214
  Receipt Date: 20231214
  Transmission Date: 20240110
  Serious: No
  Sender: FDA-Public Use
  Company Number: US-ALVOGEN-2023092229

PATIENT
  Sex: Female

DRUGS (2)
  1. FENTANYL [Suspect]
     Active Substance: FENTANYL\FENTANYL CITRATE
     Indication: Product used for unknown indication
     Dosage: PREVIOUS BOX?EXPIRATION DATE: UU-MAR-2026?STRENGTH: 25 MCG/ HR
  2. FENTANYL [Suspect]
     Active Substance: FENTANYL\FENTANYL CITRATE
     Indication: Product used for unknown indication
     Dosage: CURRENT BOX?EXPIRATION DATE: UU-MAR-2026?STRENGTH: 25 MCG/ HR

REACTIONS (2)
  - Device malfunction [Unknown]
  - Device adhesion issue [Unknown]
